FAERS Safety Report 10191380 (Version 4)
Quarter: 2014Q2

REPORT INFORMATION
  Report Type: Spontaneous
  Country: US (occurrence: US)
  Receive Date: 20140523
  Receipt Date: 20140627
  Transmission Date: 20141212
  Serious: Yes (Hospitalization, Other)
  Sender: FDA-Public Use
  Company Number: US-PFIZER INC-2014138948

PATIENT
  Age: 66 Year
  Sex: Male
  Weight: 87.08 kg

DRUGS (10)
  1. REVATIO [Suspect]
     Indication: PULMONARY HYPERTENSION
     Dosage: 20 MG, 3X/DAY
     Route: 048
     Dates: start: 2008
  2. COUMADINE [Concomitant]
     Indication: ANTICOAGULANT THERAPY
     Dosage: 2.5 MG, 1X/DAY
  3. SIMVASTATIN [Concomitant]
     Indication: BLOOD CHOLESTEROL INCREASED
     Dosage: 20 MG, 1X/DAY
  4. FUROSEMIDE [Concomitant]
     Indication: PERIPHERAL SWELLING
     Dosage: 40 MG, 2X/DAY
  5. POTASSIUM CHLORIDE [Concomitant]
     Indication: BLOOD POTASSIUM DECREASED
     Dosage: 20 MG, 1X/DAY
  6. BABY ASPIRIN [Concomitant]
     Dosage: 81 MG, 1X/DAY
  7. ADVAIR [Concomitant]
     Indication: CHRONIC OBSTRUCTIVE PULMONARY DISEASE
     Dosage: 1 PUFF, 2X/DAY
  8. FISH OIL [Concomitant]
     Dosage: UNK
  9. VITAMIN C [Concomitant]
     Dosage: UNK
  10. VITAMIN D [Concomitant]
     Dosage: UNK

REACTIONS (4)
  - Renal disorder [Unknown]
  - Ankle fracture [Unknown]
  - Nephrolithiasis [Unknown]
  - Loss of consciousness [Unknown]
